FAERS Safety Report 5424041-0 (Version None)
Quarter: 2007Q3

REPORT INFORMATION
  Report Type: 
  Country: None (occurrence: None)
  Receive Date: 20070727
  Receipt Date: 20061005
  Transmission Date: 20080115
  Serious: Yes (Hospitalization)
  Sender: FDA-Public Use
  Company Number: THYM-11105

PATIENT
  Age: 57 Year
  Sex: Male
  Weight: 86 kg

DRUGS (7)
  1. THYMOGLOBULIN [Suspect]
     Indication: LIVER TRANSPLANT
     Dosage: 1.5 MG/KG QOD IV
     Route: 042
     Dates: start: 20060221
  2. PROGRAF [Concomitant]
  3. CELLCEPT [Concomitant]
  4. BACTRIM [Concomitant]
  5. ROVALCYTE [Concomitant]
  6. CONTRAMAL [Concomitant]
  7. METHYLPREDNISOLONE 16MG TAB [Concomitant]

REACTIONS (1)
  - BILIARY ANASTOMOSIS COMPLICATION [None]
